FAERS Safety Report 7735586-2 (Version None)
Quarter: 2011Q3

REPORT INFORMATION
  Report Type: 
  Country: None (occurrence: None)
  Receive Date: 20110907
  Receipt Date: 20110825
  Transmission Date: 20111222
  Serious: Yes (Hospitalization, Disabling)
  Sender: FDA-Public Use
  Company Number: US-CELGENEUS-163-21880-11071161

PATIENT
  Sex: Female

DRUGS (19)
  1. REVLIMID [Suspect]
     Indication: MULTIPLE MYELOMA
     Dosage: 25 MILLIGRAM
     Route: 048
     Dates: start: 20110705, end: 20110714
  2. HEPARIN SODIUM [Concomitant]
     Dosage: 500 UNIT/ML
     Route: 058
  3. VELCADE [Concomitant]
     Indication: MULTIPLE MYELOMA
     Route: 065
     Dates: start: 20110705, end: 20110708
  4. SENOKOT [Concomitant]
     Dosage: 8.6 MILLIGRAM
     Route: 048
  5. OXYCONTIN [Concomitant]
     Dosage: 40 MILLIGRAM
     Route: 048
  6. HUMALOG [Concomitant]
     Dosage: 100 UNIT/ML
     Route: 065
  7. FLEXERIL [Concomitant]
     Indication: MUSCLE SPASMS
     Dosage: 10 MILLIGRAM
     Route: 048
  8. LANTUS [Concomitant]
     Dosage: 100 UNIT/ML
     Route: 065
  9. BACLOFEN [Concomitant]
     Dosage: 10 MILLIGRAM
     Route: 048
  10. MULTI-VITAMINS [Concomitant]
     Dosage: 1 TABLET
     Route: 048
  11. OMEPRAZOLE [Concomitant]
     Dosage: 20 MILLIGRAM
     Route: 048
  12. ZOFRAN [Concomitant]
     Dosage: 2ML=4MG QHR IF NOT MY BOUTH INJECT 4ML=8MG Q4H
     Route: 030
  13. DEXAMETHASONE [Concomitant]
     Indication: MULTIPLE MYELOMA
     Dosage: HIGH DOSE
     Route: 065
     Dates: start: 20110705
  14. REVLIMID [Suspect]
     Dosage: 25 MILLIGRAM
     Route: 048
     Dates: start: 20110802
  15. COLACE [Concomitant]
     Dosage: 100 MILLIGRAM
     Route: 048
  16. LOVENOX [Concomitant]
     Dosage: 40MG/0.4ML
     Route: 058
  17. OXYCODONE HCL [Concomitant]
     Indication: PAIN
     Dosage: 1-2
     Route: 048
  18. FORTICAL [Concomitant]
     Indication: MUSCLE SPASMS
     Dosage: 200 UNIT/ACT
     Route: 055
  19. KLOR-CON [Concomitant]
     Dosage: 20 MILLIGRAM
     Route: 048

REACTIONS (2)
  - FOOD INTOLERANCE [None]
  - PNEUMONIA [None]
